FAERS Safety Report 6208270-4 (Version None)
Quarter: 2009Q2

REPORT INFORMATION
  Report Type: 
  Country: None (occurrence: None)
  Receive Date: 20090522
  Receipt Date: 20090511
  Transmission Date: 20091009
  Serious: Yes (Hospitalization)
  Sender: FDA-Public Use
  Company Number: 1000006279

PATIENT
  Sex: Male
  Weight: 3.12 kg

DRUGS (6)
  1. CITALOPRAM HYDROBROMIDE [Suspect]
     Dosage: SEE IMAGE
     Route: 064
     Dates: start: 20080101, end: 20080803
  2. CITALOPRAM HYDROBROMIDE [Suspect]
     Dosage: SEE IMAGE
     Route: 064
     Dates: start: 20080804, end: 20090227
  3. CITALOPRAM HYDROBROMIDE [Suspect]
     Dosage: SEE IMAGE
     Route: 064
     Dates: start: 20090101
  4. SYMBICORT TURBUHALER (INHALANT) [Concomitant]
  5. SALBUTAMOL (INHALANT) [Concomitant]
  6. SALBUTAMOL NEBULIZER (LIQUID) [Concomitant]

REACTIONS (5)
  - CAESAREAN SECTION [None]
  - JAUNDICE NEONATAL [None]
  - MATERNAL DRUGS AFFECTING FOETUS [None]
  - NEONATAL RESPIRATORY DISTRESS SYNDROME [None]
  - PREMATURE BABY [None]
